FAERS Safety Report 7241230-3 (Version None)
Quarter: 2011Q1

REPORT INFORMATION
  Report Type: 
  Country: None (occurrence: None)
  Receive Date: 20110124
  Receipt Date: 20110112
  Transmission Date: 20110831
  Serious: Yes (Death, Hospitalization)
  Sender: FDA-Public Use
  Company Number: A0800861A

PATIENT
  Age: 83 Year
  Sex: Female
  Weight: 69.1 kg

DRUGS (6)
  1. AVANDIA [Suspect]
     Dosage: 4MG TWICE PER DAY
     Route: 048
     Dates: start: 20050501, end: 20050801
  2. LOTREL [Concomitant]
  3. NAMENDA [Concomitant]
  4. INSULIN [Concomitant]
  5. LEXAPRO [Concomitant]
  6. DIOVAN [Concomitant]

REACTIONS (2)
  - CARDIAC FAILURE CONGESTIVE [None]
  - INFECTED SKIN ULCER [None]
